FAERS Safety Report 15749469 (Version 1)
Quarter: 2018Q4

REPORT INFORMATION
  Report Type: Spontaneous
  Country: GB (occurrence: GB)
  Receive Date: 20181221
  Receipt Date: 20181221
  Transmission Date: 20190205
  Serious: Yes (Death, Hospitalization)
  Sender: FDA-Public Use
  Company Number: GB-TEVA-2018-GB-991685

PATIENT
  Age: 80 Year
  Sex: Female

DRUGS (3)
  1. FONDAPARINUX-SODIUM [Suspect]
     Active Substance: FONDAPARINUX SODIUM
     Indication: ACUTE MYOCARDIAL INFARCTION
     Route: 065
     Dates: start: 2017
  2. ASPIRIN. [Suspect]
     Active Substance: ASPIRIN
     Indication: ACUTE MYOCARDIAL INFARCTION
     Dosage: DUAL ANTI-PLATELET THERAPY
     Route: 065
     Dates: start: 2017
  3. CLOPIDOGREL [Suspect]
     Active Substance: CLOPIDOGREL BISULFATE
     Indication: ACUTE MYOCARDIAL INFARCTION
     Dosage: DUAL ANTI-PLATELET THERAPY
     Route: 065
     Dates: start: 2017

REACTIONS (2)
  - Splenic rupture [Not Recovered/Not Resolved]
  - Death [Fatal]

NARRATIVE: CASE EVENT DATE: 201704
